FAERS Safety Report 6097912-2 (Version None)
Quarter: 2009Q1

REPORT INFORMATION
  Report Type: 
  Country: None (occurrence: None)
  Receive Date: 20090227
  Receipt Date: 20090226
  Transmission Date: 20090719
  Serious: Yes (Death, Hospitalization)
  Sender: FDA-Public Use
  Company Number: PHHY2009DE07094

PATIENT
  Sex: Female

DRUGS (9)
  1. TEGRETOL [Suspect]
     Indication: CONVULSION
     Dosage: 50 MG/DAY
     Route: 048
     Dates: start: 20080314
  2. HALDOL [Suspect]
     Dosage: 2.5 MG/DAY
     Route: 048
     Dates: start: 20080307, end: 20080312
  3. HALDOL [Suspect]
     Dosage: 1 MG/DAY
     Route: 048
     Dates: start: 20080313, end: 20080327
  4. REMERGIL [Suspect]
     Dosage: 15-30 MG/DAY
     Route: 048
     Dates: start: 20080218, end: 20080327
  5. SEROQUEL [Suspect]
     Dosage: 25 MG/DAY
     Route: 048
     Dates: start: 20080225, end: 20080305
  6. SEROQUEL [Suspect]
     Dosage: 50 MG/DAY
     Route: 048
     Dates: start: 20080306, end: 20080316
  7. SEROQUEL [Suspect]
     Dosage: 100 MG/DAY
     Route: 048
     Dates: start: 20080317, end: 20080327
  8. LEVOTHYROXINE SODIUM [Concomitant]
     Dosage: 50 UG
     Route: 048
     Dates: start: 20080101, end: 20080327
  9. METOPROLOL [Concomitant]
     Dosage: 50 MG/DAY
     Route: 048
     Dates: start: 20080101, end: 20080327

REACTIONS (7)
  - AGGRESSION [None]
  - ANXIETY [None]
  - CEREBRAL DISORDER [None]
  - DISORIENTATION [None]
  - MYOCARDIAL INFARCTION [None]
  - RESTLESSNESS [None]
  - VENTRICULAR FIBRILLATION [None]
